FAERS Safety Report 9514493 (Version 3)
Quarter: 2013Q3

REPORT INFORMATION
  Report Type: Report from Study
  Country: BR (occurrence: BR)
  Receive Date: 20130911
  Receipt Date: 20130923
  Transmission Date: 20140515
  Serious: Yes (Hospitalization)
  Sender: FDA-Public Use
  Company Number: BR-ROCHE-1215171

PATIENT
  Age: 31 Year
  Sex: Female
  Weight: 63 kg

DRUGS (7)
  1. MABTHERA [Suspect]
     Indication: SYSTEMIC LUPUS ERYTHEMATOSUS
     Route: 065
     Dates: start: 20110613
  2. LOSARTAN [Concomitant]
     Indication: BLOOD PRESSURE
  3. SPLENDIL [Concomitant]
     Indication: BLOOD PRESSURE
  4. OMEPRAZOLE [Concomitant]
     Indication: GASTRIC DISORDER
  5. DEFLAZACORT [Concomitant]
     Indication: SYSTEMIC LUPUS ERYTHEMATOSUS
  6. VARFARINE [Concomitant]
  7. SIMVASTATIN [Concomitant]
     Indication: BLOOD CHOLESTEROL

REACTIONS (3)
  - Systemic lupus erythematosus [Unknown]
  - Ovarian cyst [Unknown]
  - Arthralgia [Not Recovered/Not Resolved]
